FAERS Safety Report 22377712 (Version 1)
Quarter: 2023Q2

REPORT INFORMATION
  Report Type: Spontaneous
  Country: US (occurrence: US)
  Receive Date: 20230529
  Receipt Date: 20230529
  Transmission Date: 20230721
  Serious: No
  Sender: FDA-Public Use
  Company Number: US-SANOFI-01627829

PATIENT

DRUGS (1)
  1. ALLEGRA ALLERGY [Suspect]
     Active Substance: FEXOFENADINE HYDROCHLORIDE
     Indication: Upper-airway cough syndrome
     Dosage: 1 DF (1 TABLET)
     Dates: start: 20230523

REACTIONS (1)
  - Bronchial secretion retention [Unknown]

NARRATIVE: CASE EVENT DATE: 20230524
